FAERS Safety Report 11205066 (Version 1)
Quarter: 2015Q2

REPORT INFORMATION
  Report Type: Spontaneous
  Country: DE (occurrence: DE)
  Receive Date: 20150622
  Receipt Date: 20150622
  Transmission Date: 20150821
  Serious: Yes (Other)
  Sender: FDA-Public Use
  Company Number: DE-SUN PHARMACEUTICAL INDUSTRIES LTD-2015RR-99032

PATIENT

DRUGS (1)
  1. OLANZAPINE. [Suspect]
     Active Substance: OLANZAPINE
     Indication: PRODUCT USED FOR UNKNOWN INDICATION
     Dosage: 7.5 MG, DAILY
     Route: 065
     Dates: start: 2005

REACTIONS (10)
  - Dysaesthesia [Recovered/Resolved]
  - Speech disorder [Recovered/Resolved]
  - Apathy [Recovered/Resolved]
  - Eating disorder [Recovered/Resolved]
  - Pain in extremity [Recovered/Resolved]
  - Sleep disorder [Recovered/Resolved]
  - Flushing [Recovered/Resolved]
  - Restless legs syndrome [Recovered/Resolved]
  - Sleep attacks [Recovered/Resolved]
  - Stereotypy [Recovered/Resolved]
